FAERS Safety Report 6706654-9 (Version None)
Quarter: 2010Q2

REPORT INFORMATION
  Report Type: 
  Country: None (occurrence: None)
  Receive Date: 20100503
  Receipt Date: 20100426
  Transmission Date: 20101027
  Serious: Yes (Hospitalization)
  Sender: FDA-Public Use
  Company Number: US-ASTRAZENECA-2010SE18609

PATIENT
  Sex: Male
  Weight: 61.2 kg

DRUGS (2)
  1. SYMBICORT [Suspect]
     Indication: CHRONIC OBSTRUCTIVE PULMONARY DISEASE
     Dosage: TOTAL DAILY DOSE: 160, TWO TIMES DAY
     Route: 055
     Dates: start: 20100201
  2. CRESTOR [Suspect]
     Indication: CORONARY ARTERY DISEASE
     Dosage: DAILY
     Route: 048
     Dates: start: 20100201

REACTIONS (3)
  - HEART VALVE INCOMPETENCE [None]
  - OEDEMA PERIPHERAL [None]
  - PULMONARY OEDEMA [None]
